FAERS Safety Report 24108003 (Version 1)
Quarter: 2024Q3

REPORT INFORMATION
  Report Type: Report from Study
  Country: CO (occurrence: None)
  Receive Date: 20240718
  Receipt Date: 20240718
  Transmission Date: 20241017
  Serious: Yes (Hospitalization)
  Sender: ASTRAZENECA
  Company Number: 2020SE38838

PATIENT
  Age: 9342 Day
  Sex: Female

DRUGS (1)
  1. OLAPARIB [Suspect]
     Active Substance: OLAPARIB
     Indication: Ovarian neoplasm
     Dosage: 150.0MG UNKNOWN
     Route: 048
     Dates: start: 20191029, end: 20200220

REACTIONS (4)
  - Agitation [Unknown]
  - Back pain [Unknown]
  - General physical health deterioration [Unknown]
  - Drug ineffective [Unknown]

NARRATIVE: CASE EVENT DATE: 20200305
